FAERS Safety Report 16770511 (Version 1)
Quarter: 2019Q3

REPORT INFORMATION
  Report Type: Spontaneous
  Country: US (occurrence: US)
  Receive Date: 20190904
  Receipt Date: 20190904
  Transmission Date: 20191005
  Serious: Yes (Other)
  Sender: FDA-Public Use
  Company Number: US-ROCHE-2393439

PATIENT
  Sex: Female
  Weight: 87.62 kg

DRUGS (2)
  1. PERJETA [Suspect]
     Active Substance: PERTUZUMAB
     Indication: BREAST CANCER FEMALE
     Dosage: ONGOING: YES, 420/14ML, ADMINISTER 420 MG INTRAVENOUS
     Route: 042
     Dates: start: 20181031
  2. HERCEPTIN [Suspect]
     Active Substance: TRASTUZUMAB
     Indication: BREAST CANCER FEMALE
     Dosage: 150 MG SDV, ADMINISTER 513 MG INTRAVENOUS.
     Route: 042
     Dates: start: 20181030

REACTIONS (1)
  - Wound infection [Unknown]
